FAERS Safety Report 6379796-8 (Version None)
Quarter: 2009Q3

REPORT INFORMATION
  Report Type: 
  Country: None (occurrence: None)
  Receive Date: 20090924
  Receipt Date: 20090924
  Transmission Date: 20100115
  Serious: Yes (Other)
  Sender: FDA-Public Use
  Company Number: None

PATIENT
  Age: 29 Year
  Sex: Female
  Weight: 81 kg

DRUGS (2)
  1. METFORMIN HYDROCHLORIDE [Suspect]
     Indication: POLYCYSTIC OVARIES
     Dosage: 500MG BID PO
     Route: 048
     Dates: start: 20090101, end: 20090718
  2. GLUCOPHAGE [Suspect]

REACTIONS (1)
  - OFF LABEL USE [None]
